FAERS Safety Report 7224914-2 (Version None)
Quarter: 2011Q1

REPORT INFORMATION
  Report Type: 
  Country: None (occurrence: None)
  Receive Date: 20110113
  Receipt Date: 20110110
  Transmission Date: 20110831
  Serious: Yes (Other)
  Sender: FDA-Public Use
  Company Number: US-AMGEN-USASP2011001476

PATIENT

DRUGS (2)
  1. ENBREL [Suspect]
     Indication: RHEUMATOID ARTHRITIS
     Dates: start: 20080725, end: 20101222
  2. METHOTREXATE (TREXALL) [Concomitant]
     Dates: start: 20080817

REACTIONS (8)
  - GASTRITIS [None]
  - DEVICE DIFFICULT TO USE [None]
  - FIBROMYALGIA [None]
  - RHEUMATOID ARTHRITIS [None]
  - DYSGEUSIA [None]
  - DIARRHOEA [None]
  - INJECTION SITE PAIN [None]
  - RASH [None]
